FAERS Safety Report 14012713 (Version 1)
Quarter: 2017Q3

REPORT INFORMATION
  Report Type: Spontaneous
  Country: CA (occurrence: CA)
  Receive Date: 20170926
  Receipt Date: 20170926
  Transmission Date: 20171128
  Serious: Yes (Disabling)
  Sender: FDA-Public Use
  Company Number: CA-TEVA-810405ACC

PATIENT
  Age: 66 Year
  Sex: Male

DRUGS (4)
  1. TOLTERODINE [Suspect]
     Active Substance: TOLTERODINE
     Indication: HYPERTONIC BLADDER
     Dosage: 2 MILLIGRAM DAILY;
     Route: 048
  2. CLONAZEPAM. [Concomitant]
     Active Substance: CLONAZEPAM
  3. TYLENOL WITH CODEINE [Concomitant]
     Active Substance: ACETAMINOPHEN\CODEINE PHOSPHATE
  4. RAMIPRIL. [Concomitant]
     Active Substance: RAMIPRIL

REACTIONS (3)
  - Pollakiuria [Recovered/Resolved]
  - Dizziness [Recovered/Resolved]
  - Product substitution issue [Recovered/Resolved]
